FAERS Safety Report 6567357-7 (Version None)
Quarter: 2010Q1

REPORT INFORMATION
  Report Type: 
  Country: None (occurrence: None)
  Receive Date: 20100202
  Receipt Date: 20100122
  Transmission Date: 20100710
  Serious: Yes (Hospitalization, Other)
  Sender: FDA-Public Use
  Company Number: PHEH2008US03279

PATIENT
  Sex: Female

DRUGS (9)
  1. ZELNORM [Suspect]
     Indication: INTESTINAL FUNCTIONAL DISORDER
     Dosage: 1 DF, QD
     Route: 048
     Dates: end: 20070729
  2. VIOXX [Concomitant]
  3. OMEPRAZOLE [Concomitant]
  4. TEMAZEPAM [Concomitant]
  5. METRONIDAZOLE [Concomitant]
  6. PIROXICAM [Concomitant]
  7. OLOPATADINE [Concomitant]
  8. VENLAFAXINE HCL [Concomitant]
  9. FELODIPINE [Concomitant]

REACTIONS (20)
  - ACUTE MYOCARDIAL INFARCTION [None]
  - ARTHRITIS [None]
  - BRONCHITIS [None]
  - CHEST DISCOMFORT [None]
  - CHILLS [None]
  - DEPRESSION [None]
  - DRUG INEFFECTIVE [None]
  - DYSPHAGIA [None]
  - DYSPNOEA [None]
  - EMOTIONAL DISORDER [None]
  - FATIGUE [None]
  - HYPERHIDROSIS [None]
  - HYPOTHYROIDISM [None]
  - HYSTERECTOMY [None]
  - INJURY [None]
  - NEPHROLITHIASIS [None]
  - OSTEOARTHRITIS [None]
  - PALPITATIONS [None]
  - PANIC ATTACK [None]
  - UTERINE CANCER [None]
